FAERS Safety Report 4356804-7 (Version None)
Quarter: 2004Q2

REPORT INFORMATION
  Report Type: 
  Country: None (occurrence: None)
  Receive Date: 20040507
  Receipt Date: 20040426
  Transmission Date: 20050107
  Serious: Yes (Hospitalization, Other)
  Sender: FDA-Public Use
  Company Number: 234352

PATIENT
  Age: 8 Year
  Sex: Female
  Weight: 19 kg

DRUGS (3)
  1. BLINDED (NORDITROPIN SIMPLE XX) INJ., 5MG [Suspect]
     Dosage: SUBCUTANEOUS
     Route: 058
     Dates: start: 20030707, end: 20031127
  2. BLINDED (NORDITROPIN SIMPLE XX) INJ., 5MG [Suspect]
     Dosage: SUBCUTANEOUS
     Route: 058
     Dates: start: 20031211
  3. DEPAKENE [Concomitant]

REACTIONS (2)
  - CONVULSION [None]
  - EPILEPSY [None]
